FAERS Safety Report 4705075-8 (Version None)
Quarter: 2005Q3

REPORT INFORMATION
  Report Type: 
  Country: None (occurrence: None)
  Receive Date: 20050701
  Receipt Date: 20050502
  Transmission Date: 20060218
  Serious: Yes (Hospitalization)
  Sender: FDA-Public Use
  Company Number: FR-SANOFI-SYNTHELABO-A02200501213

PATIENT
  Age: 45 Year
  Sex: Female

DRUGS (8)
  1. PLAVIX [Suspect]
     Indication: SUICIDE ATTEMPT
     Route: 048
     Dates: start: 20050501, end: 20050501
  2. IMOVANE [Suspect]
     Indication: SUICIDE ATTEMPT
     Route: 048
     Dates: start: 20050501, end: 20050501
  3. PRAXILENE [Suspect]
     Indication: SUICIDE ATTEMPT
     Route: 048
     Dates: start: 20050501, end: 20050501
  4. FONZYLANE [Suspect]
     Indication: SUICIDE ATTEMPT
     Route: 048
     Dates: start: 20050501, end: 20050501
  5. PLAVIX [Concomitant]
     Indication: PERIPHERAL OCCLUSIVE DISEASE
     Route: 048
  6. IMOVANE [Concomitant]
     Indication: INSOMNIA
     Dosage: UNK
     Route: 048
  7. PRAXILENE [Concomitant]
     Indication: PERIPHERAL OCCLUSIVE DISEASE
     Dosage: UNK
     Route: 048
  8. FONZYLANE [Concomitant]
     Indication: PERIPHERAL OCCLUSIVE DISEASE
     Dosage: UNK
     Route: 048

REACTIONS (3)
  - DEPRESSED LEVEL OF CONSCIOUSNESS [None]
  - INTENTIONAL MISUSE [None]
  - SOMNOLENCE [None]
